FAERS Safety Report 6340251-2 (Version None)
Quarter: 2009Q3

REPORT INFORMATION
  Report Type: 
  Country: None (occurrence: None)
  Receive Date: 20090902
  Receipt Date: 20090818
  Transmission Date: 20100115
  Serious: Yes (Other)
  Sender: FDA-Public Use
  Company Number: 09-AUR-10220

PATIENT
  Age: 59 Year
  Sex: Female

DRUGS (8)
  1. FLUOXETINE [Suspect]
     Indication: DEPRESSION
     Dosage: 60 MG, BID, ORAL
     Route: 048
     Dates: start: 20080301
  2. FEXOFENADINE [Concomitant]
  3. HYORIMELLOSE [Concomitant]
  4. LANSOPRAZOLE [Concomitant]
  5. LEVOTHYROXINE SODIUM [Concomitant]
  6. MEBEVERINE HCI [Concomitant]
  7. SUMATRIPTAN SUCCINATE [Concomitant]
  8. VISCOTEARS [Concomitant]

REACTIONS (3)
  - AMNESIA [None]
  - DRUG DISPENSING ERROR [None]
  - INCORRECT DOSE ADMINISTERED [None]
